FAERS Safety Report 6870610-0 (Version None)
Quarter: 2010Q3

REPORT INFORMATION
  Report Type: 
  Country: None (occurrence: None)
  Receive Date: 20100721
  Receipt Date: 20100713
  Transmission Date: 20110219
  Serious: Yes (Hospitalization)
  Sender: FDA-Public Use
  Company Number: 2010MA000712

PATIENT
  Age: 32 Year
  Sex: Male

DRUGS (2)
  1. SULFAMETHOXAZOLE AND TRIMETHOPRIM [Suspect]
     Indication: PROSTATITIS
  2. AMPICILLIN [Suspect]
     Indication: PROSTATITIS

REACTIONS (1)
  - COLITIS [None]
